APPROVED DRUG PRODUCT: QUINACT
Active Ingredient: QUINIDINE GLUCONATE
Strength: 400MG
Dosage Form/Route: TABLET;ORAL
Application: A086099 | Product #001
Applicant: BAYER HEALTHCARE PHARMACEUTICALS INC
Approved: Approved Prior to Jan 1, 1982 | RLD: No | RS: No | Type: DISCN